FAERS Safety Report 20447946 (Version 1)
Quarter: 2022Q1

REPORT INFORMATION
  Report Type: Spontaneous
  Country: US (occurrence: US)
  Receive Date: 20220209
  Receipt Date: 20220209
  Transmission Date: 20220423
  Serious: Yes (Other)
  Sender: FDA-Public Use
  Company Number: US-REGENERON PHARMACEUTICALS, INC.-2022-22052

PATIENT

DRUGS (1)
  1. PRALUENT [Suspect]
     Active Substance: ALIROCUMAB
     Indication: Hypercholesterolaemia
     Dosage: 150 MG, Q2W
     Route: 058
     Dates: start: 2018

REACTIONS (4)
  - Cardiac disorder [Unknown]
  - Arteriosclerosis [Unknown]
  - Product dose omission issue [Unknown]
  - Product storage error [Unknown]

NARRATIVE: CASE EVENT DATE: 20220201
